FAERS Safety Report 7096342-4 (Version None)
Quarter: 2010Q4

REPORT INFORMATION
  Report Type: 
  Country: None (occurrence: None)
  Receive Date: 20101111
  Receipt Date: 20101029
  Transmission Date: 20110411
  Serious: Yes (Hospitalization, Other)
  Sender: FDA-Public Use
  Company Number: GB-B.I. PHARMACEUTICALS,INC./RIDGEFIELD-2010-UK-01034UK

PATIENT
  Age: 37 Year
  Sex: Male
  Weight: 68 kg

DRUGS (3)
  1. VIRAMUNE [Suspect]
     Indication: HIV INFECTION
     Dosage: 200 MG
     Route: 048
     Dates: start: 20090929
  2. VIRAMUNE [Suspect]
     Dosage: 400 MG
     Route: 048
     Dates: end: 20090930
  3. TRUVADA [Concomitant]
     Indication: HIV INFECTION
     Dosage: 1DF
     Route: 048
     Dates: start: 20090929

REACTIONS (3)
  - ALANINE AMINOTRANSFERASE INCREASED [None]
  - BLOOD ALKALINE PHOSPHATASE INCREASED [None]
  - HEPATITIS ACUTE [None]
